FAERS Safety Report 19489470 (Version 3)
Quarter: 2021Q3

REPORT INFORMATION
  Report Type: Spontaneous
  Country: US (occurrence: US)
  Receive Date: 20210703
  Receipt Date: 20210825
  Transmission Date: 20211014
  Serious: No
  Sender: FDA-Public Use
  Company Number: US-SA-2021SA204234

PATIENT
  Sex: Male

DRUGS (1)
  1. NASACORT ALLERGY 24HR [Suspect]
     Active Substance: TRIAMCINOLONE ACETONIDE
     Dosage: UNK, QD (1 SPRAY PER NOSTRIL ; DRUG TREATMENT DURATION: SINCE 2015)
     Route: 045

REACTIONS (3)
  - Product quality issue [Unknown]
  - Nasal congestion [Unknown]
  - Therapeutic product effect decreased [Unknown]
